FAERS Safety Report 25659682 (Version 1)
Quarter: 2025Q3

REPORT INFORMATION
  Report Type: Spontaneous
  Country: EU (occurrence: EU)
  Receive Date: 20250808
  Receipt Date: 20250808
  Transmission Date: 20251021
  Serious: Yes (Hospitalization, Other)
  Sender: ASTELLAS
  Company Number: EU-ASTELLAS-2025-AER-042744

PATIENT
  Age: 45 Year

DRUGS (4)
  1. TACROLIMUS [Interacting]
     Active Substance: TACROLIMUS
     Indication: Heart transplant
     Route: 065
  2. TACROLIMUS [Interacting]
     Active Substance: TACROLIMUS
     Route: 065
  3. TACROLIMUS [Interacting]
     Active Substance: TACROLIMUS
     Route: 065
  4. FOSFOMYCIN TROMETHAMINE [Interacting]
     Active Substance: FOSFOMYCIN TROMETHAMINE
     Indication: Infection prophylaxis
     Route: 065

REACTIONS (4)
  - Renal tubular acidosis [Recovered/Resolved]
  - Intention tremor [Recovered/Resolved]
  - Pneumonia pseudomonal [Unknown]
  - Drug interaction [Unknown]
